FAERS Safety Report 16018000 (Version 1)
Quarter: 2019Q1

REPORT INFORMATION
  Report Type: Spontaneous
  Country: US (occurrence: US)
  Receive Date: 20190228
  Receipt Date: 20190228
  Transmission Date: 20190418
  Serious: Yes (Other)
  Sender: FDA-Public Use
  Company Number: US-ASTRAZENECA-2019SE32589

PATIENT
  Sex: Male

DRUGS (3)
  1. BYETTA [Suspect]
     Active Substance: EXENATIDE
     Indication: TYPE 2 DIABETES MELLITUS
     Route: 065
  2. FARXIGA [Suspect]
     Active Substance: DAPAGLIFLOZIN PROPANEDIOL
     Indication: TYPE 2 DIABETES MELLITUS
     Route: 048
  3. BYDUREON [Suspect]
     Active Substance: EXENATIDE
     Indication: TYPE 2 DIABETES MELLITUS
     Route: 065

REACTIONS (8)
  - Diarrhoea [Unknown]
  - Diabetes mellitus inadequate control [Not Recovered/Not Resolved]
  - Neuropathy peripheral [Unknown]
  - Drug intolerance [Unknown]
  - Testicular pain [Recovered/Resolved]
  - Vomiting [Unknown]
  - Myocardial infarction [Unknown]
  - Glycosylated haemoglobin increased [Not Recovered/Not Resolved]
